FAERS Safety Report 7641979-4 (Version None)
Quarter: 2011Q3

REPORT INFORMATION
  Report Type: 
  Country: None (occurrence: None)
  Receive Date: 20110728
  Receipt Date: 20110726
  Transmission Date: 20111222
  Serious: Yes (Other)
  Sender: FDA-Public Use
  Company Number: US-PFIZER INC-2011170273

PATIENT
  Age: 12 Year
  Sex: Male
  Weight: 109 kg

DRUGS (1)
  1. ZOLOFT [Suspect]
     Indication: ANXIETY
     Dosage: 25 MG, UNK
     Route: 048
     Dates: start: 20110723

REACTIONS (4)
  - DYSPNOEA [None]
  - PANIC ATTACK [None]
  - HEART RATE INCREASED [None]
  - FEELING ABNORMAL [None]
